FAERS Safety Report 10270193 (Version 1)
Quarter: 2014Q2

REPORT INFORMATION
  Report Type: Spontaneous
  Country: US (occurrence: None)
  Receive Date: 20140627
  Receipt Date: 20140627
  Transmission Date: 20141212
  Serious: Yes (Death)
  Sender: FDA-Public Use
  Company Number: None

PATIENT
  Age: 32 Year
  Sex: Male
  Weight: 88 kg

DRUGS (7)
  1. ALTEPLASE [Suspect]
     Indication: CEREBROVASCULAR ACCIDENT
     Dosage: STROKE PROTOCOL ONCE INTRAVENOUS
     Route: 042
     Dates: start: 20140601, end: 20140601
  2. AZATHIOPRINE 200 MG [Concomitant]
  3. MULTIVITAMIN [Concomitant]
  4. PANTOPRAZOLE 40 MG [Concomitant]
  5. PREDNISONE 40 MG [Concomitant]
  6. SUCRALFATE 1 GM [Concomitant]
  7. TACROLIMUS 0.1% [Concomitant]

REACTIONS (3)
  - Cerebral haemorrhage [None]
  - Intracranial pressure increased [None]
  - Brain oedema [None]
